FAERS Safety Report 10184553 (Version 1)
Quarter: 2014Q2

REPORT INFORMATION
  Report Type: Spontaneous
  Country: GB (occurrence: GB)
  Receive Date: 20140521
  Receipt Date: 20140521
  Transmission Date: 20141212
  Serious: Yes (Other)
  Sender: FDA-Public Use
  Company Number: GB-DRREDDYS-GER/UKI/14/0040406

PATIENT
  Age: 83 Year
  Sex: Male
  Weight: 66.22 kg

DRUGS (12)
  1. QUETIAPINE [Suspect]
     Indication: AGITATION
     Route: 048
     Dates: start: 20140414, end: 20140421
  2. QUETIAPINE [Suspect]
     Route: 048
     Dates: start: 20140421, end: 20140422
  3. RISPERIDONE [Suspect]
     Indication: AGITATION
  4. RISPERIDONE [Suspect]
     Indication: INSOMNIA
  5. AMLODIPINE [Concomitant]
     Indication: PRODUCT USED FOR UNKNOWN INDICATION
  6. ASPIRIN [Concomitant]
     Indication: PRODUCT USED FOR UNKNOWN INDICATION
  7. CITALOPRAM [Concomitant]
     Indication: PRODUCT USED FOR UNKNOWN INDICATION
  8. LORAZEPAM [Concomitant]
     Indication: PRODUCT USED FOR UNKNOWN INDICATION
  9. LOSARTAN POTASSIUM [Concomitant]
     Indication: PRODUCT USED FOR UNKNOWN INDICATION
  10. MEMANTIN [Concomitant]
     Indication: PRODUCT USED FOR UNKNOWN INDICATION
  11. RISPERIDONE [Concomitant]
     Indication: PRODUCT USED FOR UNKNOWN INDICATION
  12. ZOPICLONE [Concomitant]
     Indication: PRODUCT USED FOR UNKNOWN INDICATION

REACTIONS (9)
  - Agitation [Recovered/Resolved with Sequelae]
  - Insomnia [Unknown]
  - Condition aggravated [Unknown]
  - Dyskinesia [Recovered/Resolved with Sequelae]
  - Restlessness [Not Recovered/Not Resolved]
  - Seizure like phenomena [Recovered/Resolved with Sequelae]
  - Somnolence [Recovered/Resolved with Sequelae]
  - Staring [Recovered/Resolved with Sequelae]
  - Bruxism [Recovered/Resolved with Sequelae]
